FAERS Safety Report 9111518 (Version 2)
Quarter: 2014Q1

REPORT INFORMATION
  Report Type: Spontaneous
  Country: US (occurrence: US)
  Receive Date: 20130219
  Receipt Date: 20140213
  Transmission Date: 20141002
  Serious: Yes (Other)
  Sender: FDA-Public Use
  Company Number: US-BRISTOL-MYERS SQUIBB COMPANY-17063959

PATIENT
  Age: 61 Year
  Sex: Female

DRUGS (5)
  1. ORENCIA [Suspect]
     Indication: RHEUMATOID ARTHRITIS
     Dosage: LAST INF:16NOV12,16FEB2013,NO OF INF:4, 3 VIALS?LAST INF:MARCH13?DISCONTINUED
     Route: 042
  2. PREDNISOLONE [Concomitant]
  3. METHOTREXATE [Concomitant]
  4. REMICADE [Concomitant]
  5. PLAQUENIL [Concomitant]

REACTIONS (8)
  - Rash generalised [Unknown]
  - Eye swelling [Unknown]
  - Skin exfoliation [Unknown]
  - Postoperative wound infection [Unknown]
  - Drug ineffective [Unknown]
  - Urinary tract infection [Unknown]
  - Blood pressure increased [Unknown]
  - Influenza [Unknown]
